FAERS Safety Report 18722767 (Version 1)
Quarter: 2021Q1

REPORT INFORMATION
  Report Type: Spontaneous
  Country: US (occurrence: US)
  Receive Date: 20210107
  Receipt Date: 20210107
  Transmission Date: 20210419
  Serious: No
  Sender: FDA-Public Use
  Company Number: None

PATIENT
  Age: 93 Year
  Sex: Male
  Weight: 56.7 kg

DRUGS (1)
  1. DIGOXIN (DIGOXIN 0.25MG TAB) [Suspect]
     Active Substance: DIGOXIN
     Indication: ATRIAL FIBRILLATION
     Route: 048
     Dates: start: 20190826, end: 20190916

REACTIONS (4)
  - Incorrect dose administered [None]
  - Bradycardia [None]
  - Hypotension [None]
  - Cardioactive drug level increased [None]

NARRATIVE: CASE EVENT DATE: 20190912
